FAERS Safety Report 18363327 (Version 3)
Quarter: 2020Q4

REPORT INFORMATION
  Report Type: Report from Study
  Country: JP (occurrence: JP)
  Receive Date: 20201009
  Receipt Date: 20201117
  Transmission Date: 20210114
  Serious: Yes (Hospitalization)
  Sender: FDA-Public Use
  Company Number: JP-AMGEN-JPNNI2020160334

PATIENT
  Age: 72 Year
  Sex: Male
  Weight: 77 kg

DRUGS (9)
  1. EVOLOCUMAB [Suspect]
     Active Substance: EVOLOCUMAB
     Indication: HYPERCHOLESTEROLAEMIA
     Dosage: 140 MILLIGRAM, Q2WK
     Route: 058
     Dates: start: 20200623
  2. ARTIST [Concomitant]
     Active Substance: CARVEDILOL
     Dosage: 2.5 MILLIGRAM, QD
     Route: 048
  3. METGLUCO [Concomitant]
     Active Substance: METFORMIN HYDROCHLORIDE
     Dosage: 500 MILLIGRAM, QD
     Route: 048
  4. ZETIA [Concomitant]
     Active Substance: EZETIMIBE
     Indication: HYPERCHOLESTEROLAEMIA
     Dosage: 10 MILLIGRAM, QD
  5. LIOVEL [Concomitant]
     Active Substance: ALOGLIPTIN BENZOATE\PIOGLITAZONE HYDROCHLORIDE
     Dosage: 1 DOSAGE FORM, QD
     Route: 048
  6. SUGLAT [Concomitant]
     Active Substance: IPRAGLIFLOZIN L-PROLINE
     Dosage: 50 MILLIGRAM, QD
     Route: 048
  7. AMARYL [Concomitant]
     Active Substance: GLIMEPIRIDE
     Dosage: 1 MILLIGRAM, QD
     Route: 048
  8. TAKELDA [Concomitant]
     Active Substance: ASPIRIN\LANSOPRAZOLE
     Dosage: 1 DOSAGE FORM, QD
     Route: 048
  9. DIOVAN [Concomitant]
     Active Substance: VALSARTAN
     Dosage: 40 MILLIGRAM, QD
     Route: 048

REACTIONS (1)
  - Hepatic enzyme increased [Recovering/Resolving]

NARRATIVE: CASE EVENT DATE: 20200928
